FAERS Safety Report 16938353 (Version 1)
Quarter: 2019Q4

REPORT INFORMATION
  Report Type: Spontaneous
  Country: CN (occurrence: CN)
  Receive Date: 20191019
  Receipt Date: 20191019
  Transmission Date: 20200122
  Serious: Yes (Life-Threatening, Other)
  Sender: FDA-Public Use
  Company Number: CN-ACCORD-156996

PATIENT
  Age: 73 Year
  Sex: Female

DRUGS (4)
  1. CAPECITABINE. [Suspect]
     Active Substance: CAPECITABINE
     Indication: BREAST CANCER
     Dosage: 21-DAY CYCLES, TWICE DAILY ON DAYS 1-14, DOSE REDUCED TO 1000 MG TWICE DAILY,
     Route: 048
     Dates: start: 201704, end: 2017
  2. DOCETAXEL. [Suspect]
     Active Substance: DOCETAXEL
     Indication: BREAST CANCER
     Dosage: 21-DAY CYCLES, ON DAY 1, LAST DOSE OF CHEMOTHERAPY WAS ADMINISTERED ON 10-AUG-2017
     Route: 042
     Dates: start: 201704, end: 20170810
  3. EXEMESTANE. [Concomitant]
     Active Substance: EXEMESTANE
     Indication: METASTATIC NEOPLASM
     Route: 048
     Dates: start: 201503
  4. CAPECITABINE. [Suspect]
     Active Substance: CAPECITABINE
     Indication: BREAST CANCER
     Dosage: DURING THE 5TH AND 6TH CYCLES OF CHEMOTHERAPY,
     Route: 048
     Dates: start: 2017, end: 20170810

REACTIONS (2)
  - Fingerprint loss [Unknown]
  - Palmar-plantar erythrodysaesthesia syndrome [Recovering/Resolving]

NARRATIVE: CASE EVENT DATE: 2017
